FAERS Safety Report 7451881-9 (Version None)
Quarter: 2011Q2

REPORT INFORMATION
  Report Type: 
  Country: None (occurrence: None)
  Receive Date: 20110425
  Receipt Date: 20110406
  Transmission Date: 20111010
  Serious: Yes (Hospitalization, Other)
  Sender: FDA-Public Use
  Company Number: 2011SP007782

PATIENT
  Sex: Female

DRUGS (2)
  1. RADIOTHERAPY [Concomitant]
  2. TEMODAL [Suspect]
     Indication: ANAPLASTIC ASTROCYTOMA
     Dosage: 140 MG;QD

REACTIONS (9)
  - NERVOUS SYSTEM DISORDER [None]
  - PSYCHOTIC DISORDER DUE TO A GENERAL MEDICAL CONDITION [None]
  - ANAPLASTIC ASTROCYTOMA [None]
  - DISEASE PROGRESSION [None]
  - PANCYTOPENIA [None]
  - MOBILITY DECREASED [None]
  - DISORIENTATION [None]
  - HEMIPARESIS [None]
  - THROMBOCYTOPENIA [None]
